FAERS Safety Report 19268205 (Version 2)
Quarter: 2021Q2

REPORT INFORMATION
  Report Type: Spontaneous
  Country: DE (occurrence: DE)
  Receive Date: 20210517
  Receipt Date: 20210607
  Transmission Date: 20210717
  Serious: Yes (Other)
  Sender: FDA-Public Use
  Company Number: NVSC2021DE104695

PATIENT
  Age: 63 Year
  Sex: Female

DRUGS (16)
  1. PANTOPRAZOL [Suspect]
     Active Substance: PANTOPRAZOLE SODIUM
     Indication: PRODUCT USED FOR UNKNOWN INDICATION
     Dosage: 1 UNK, QD
     Route: 048
     Dates: start: 20210409, end: 20210409
  2. ORFIRIL [Suspect]
     Active Substance: VALPROATE SODIUM
     Indication: PRODUCT USED FOR UNKNOWN INDICATION
     Dosage: 1 DF, QD
     Route: 048
     Dates: start: 20210409, end: 20210409
  3. VIGANTOL [CHOLECALCIFEROL\CHOLESTEROL] [Suspect]
     Active Substance: CHOLECALCIFEROL\CHOLESTEROL
     Indication: PRODUCT USED FOR UNKNOWN INDICATION
     Dosage: 1 DF,QD (TABLET MIX?UP)
     Route: 048
     Dates: start: 20210409, end: 20210409
  4. GASTROZEPIN [Concomitant]
     Active Substance: PIRENZEPINE HYDROCHLORIDE
     Indication: PRODUCT USED FOR UNKNOWN INDICATION
     Dosage: 1 DF,QD
     Route: 048
  5. METOPROLOL. [Suspect]
     Active Substance: METOPROLOL
     Dosage: 47.5MG (TABLET MIXUP)
     Route: 048
     Dates: start: 20210409, end: 20210409
  6. ORFIRIL [Suspect]
     Active Substance: VALPROATE SODIUM
     Dosage: 1 DF (500)
     Route: 048
  7. LAMOTRIGIN [Concomitant]
     Active Substance: LAMOTRIGINE
     Dosage: 5 DF,QD
     Route: 048
  8. CLOZAPINE. [Suspect]
     Active Substance: CLOZAPINE
     Indication: PRODUCT USED FOR UNKNOWN INDICATION
     Dosage: 1 DF, QD (100) (TABLET MIX?UP)
     Route: 048
     Dates: start: 20210409, end: 20210409
  9. HALDOL [Suspect]
     Active Substance: HALOPERIDOL
     Indication: PRODUCT USED FOR UNKNOWN INDICATION
     Dosage: 1 DF, QD (TABLET MIX?UP)
     Route: 048
     Dates: start: 20210409, end: 20210409
  10. TEGRETAL [Concomitant]
     Active Substance: CARBAMAZEPINE
     Indication: PRODUCT USED FOR UNKNOWN INDICATION
     Dosage: 2 DF, QD
     Route: 048
  11. METOPROLOL. [Suspect]
     Active Substance: METOPROLOL
     Indication: PRODUCT USED FOR UNKNOWN INDICATION
     Dosage: 47 (TABLET MIXUP)
     Route: 048
     Dates: start: 20210409
  12. LAMOTRIGIN [Concomitant]
     Active Substance: LAMOTRIGINE
     Indication: PRODUCT USED FOR UNKNOWN INDICATION
     Dosage: 2 DF,QD
     Route: 048
     Dates: start: 20210409, end: 20210409
  13. PIPAMPERONE [Suspect]
     Active Substance: PIPAMPERONE
     Indication: PRODUCT USED FOR UNKNOWN INDICATION
     Dosage: 1 DF, QD (TABLET MIX?UP)
     Route: 048
     Dates: start: 20210409, end: 20210409
  14. METOPROLOL. [Suspect]
     Active Substance: METOPROLOL
     Dosage: 5 MG (TABLET MIXUP)
     Route: 048
  15. ORFIRIL [Suspect]
     Active Substance: VALPROATE SODIUM
     Dosage: 3 UNK
     Route: 048
  16. LEVETIRACETAM. [Concomitant]
     Active Substance: LEVETIRACETAM
     Indication: PRODUCT USED FOR UNKNOWN INDICATION
     Dosage: 2500 MG, QD (1000 MG)
     Route: 048

REACTIONS (7)
  - Sopor [Recovering/Resolving]
  - Disorientation [Recovering/Resolving]
  - Generalised tonic-clonic seizure [Recovered/Resolved]
  - Accidental exposure to product [Unknown]
  - Seizure [Recovering/Resolving]
  - Exposure via ingestion [Unknown]
  - Wrong patient received product [Unknown]

NARRATIVE: CASE EVENT DATE: 20210409
